FAERS Safety Report 9157775 (Version 1)
Quarter: 2013Q1

REPORT INFORMATION
  Report Type: Report from Study
  Country: DE (occurrence: DE)
  Receive Date: 20130312
  Receipt Date: 20130312
  Transmission Date: 20140127
  Serious: Yes (Death, Hospitalization)
  Sender: FDA-Public Use
  Company Number: DE-ROCHE-1178971

PATIENT
  Age: 59 Year
  Sex: Female
  Weight: 69.8 kg

DRUGS (3)
  1. CAPECITABINE [Suspect]
     Indication: BREAST CANCER
     Route: 048
     Dates: start: 20120806, end: 20130109
  2. LAPATINIB [Suspect]
     Indication: BREAST CANCER
     Route: 048
     Dates: start: 20120806, end: 20130109
  3. VINORELBINE [Suspect]
     Indication: BREAST CANCER
     Route: 042
     Dates: start: 20120806, end: 20121227

REACTIONS (8)
  - Malignant neoplasm progression [Fatal]
  - Metastases to central nervous system [Fatal]
  - Dehydration [Recovered/Resolved]
  - Malnutrition [Unknown]
  - Diarrhoea [Unknown]
  - Nausea [Unknown]
  - Vomiting [Unknown]
  - Convulsion [Recovered/Resolved]
